FAERS Safety Report 24917627 (Version 2)
Quarter: 2025Q1

REPORT INFORMATION
  Report Type: Spontaneous
  Country: SK (occurrence: SK)
  Receive Date: 20250203
  Receipt Date: 20250206
  Transmission Date: 20250409
  Serious: Yes (Death, Other)
  Sender: INCYTE
  Company Number: SK-002147023-NVSC2024SK233513

PATIENT

DRUGS (1)
  1. RUXOLITINIB [Suspect]
     Active Substance: RUXOLITINIB
     Indication: Myelofibrosis
     Dosage: 5 MG, BID
     Route: 065

REACTIONS (4)
  - Haemorrhage [Unknown]
  - COVID-19 [Fatal]
  - Extravasation blood [Unknown]
  - Renal failure [Fatal]
